FAERS Safety Report 20699643 (Version 1)
Quarter: 2022Q2

REPORT INFORMATION
  Report Type: Spontaneous
  Country: PT (occurrence: PT)
  Receive Date: 20220412
  Receipt Date: 20220412
  Transmission Date: 20220721
  Serious: Yes (Death, Hospitalization)
  Sender: FDA-Public Use
  Company Number: PT-TEVA-2022-PT-2023770

PATIENT
  Age: 73 Year
  Sex: Male

DRUGS (2)
  1. METFORMIN [Suspect]
     Active Substance: METFORMIN HYDROCHLORIDE
     Dosage: 1000 MILLIGRAM DAILY;
     Route: 048
  2. EMPAGLIFLOZIN [Concomitant]
     Active Substance: EMPAGLIFLOZIN
     Dosage: 1000 MILLIGRAM DAILY;
     Route: 048

REACTIONS (9)
  - Death [Fatal]
  - Renal disorder [Fatal]
  - Metabolic acidosis [Fatal]
  - Shock [Fatal]
  - Multiple organ dysfunction syndrome [Fatal]
  - Acute abdomen [Fatal]
  - Aortic thrombosis [Fatal]
  - Renal artery thrombosis [Fatal]
  - Mesenteric artery thrombosis [Fatal]
